FAERS Safety Report 11792755 (Version 1)
Quarter: 2015Q4

REPORT INFORMATION
  Report Type: Spontaneous
  Country: US (occurrence: None)
  Receive Date: 20151130
  Receipt Date: 20151130
  Transmission Date: 20160305
  Serious: Yes (Hospitalization, Other)
  Sender: FDA-Public Use
  Company Number: 2015US-101550

PATIENT
  Age: 43 Year
  Sex: Male
  Weight: 82 kg

DRUGS (8)
  1. BACTRIM DS [Suspect]
     Active Substance: SULFAMETHOXAZOLE\TRIMETHOPRIM
     Indication: LOCALISED INFECTION
     Route: 048
     Dates: start: 20150711, end: 20150713
  2. WELLBUTRIN (BUPROPION) [Concomitant]
  3. VIAGRA [Suspect]
     Active Substance: SILDENAFIL CITRATE
     Indication: ERECTILE DYSFUNCTION
     Route: 048
  4. LYRICA [Suspect]
     Active Substance: PREGABALIN
     Indication: RESTLESS LEGS SYNDROME
     Route: 048
     Dates: start: 2006
  5. LEXAPRO [Concomitant]
     Active Substance: ESCITALOPRAM OXALATE
  6. BACTRIM DS [Suspect]
     Active Substance: SULFAMETHOXAZOLE\TRIMETHOPRIM
     Indication: BACTERIAL INFECTION
     Route: 048
     Dates: start: 20150711, end: 20150713
  7. CELEBREX [Suspect]
     Active Substance: CELECOXIB
     Indication: ARTHRITIS
     Route: 048
     Dates: start: 2015
  8. LYRICA [Suspect]
     Active Substance: PREGABALIN
     Indication: NERVE INJURY
     Route: 048
     Dates: start: 2006

REACTIONS (11)
  - Blister [None]
  - Skin tightness [None]
  - Wound infection staphylococcal [None]
  - Erythema [None]
  - Wound secretion [None]
  - Drug ineffective [None]
  - Nausea [None]
  - Localised infection [None]
  - Joint swelling [None]
  - Peripheral swelling [None]
  - Purulence [None]

NARRATIVE: CASE EVENT DATE: 20150710
